FAERS Safety Report 7406387-X (Version None)
Quarter: 2011Q2

REPORT INFORMATION
  Report Type: 
  Country: None (occurrence: None)
  Receive Date: 20110405
  Receipt Date: 20110405
  Transmission Date: 20111010
  Serious: Yes (Hospitalization)
  Sender: FDA-Public Use
  Company Number: None

PATIENT
  Age: 82 Year
  Sex: Female

DRUGS (1)
  1. CALCIUM-VIACTIV CHEWABLE- 500MG [Suspect]
     Dosage: 500MG BID PO PRIOR TO ADMISSION
     Route: 048

REACTIONS (2)
  - CONFUSIONAL STATE [None]
  - HYPERCALCAEMIA [None]
